FAERS Safety Report 11236864 (Version 1)
Quarter: 2015Q3

REPORT INFORMATION
  Report Type: Spontaneous
  Country: SE (occurrence: SE)
  Receive Date: 20150703
  Receipt Date: 20150703
  Transmission Date: 20151125
  Serious: Yes (Death, Hospitalization)
  Sender: FDA-Public Use
  Company Number: SE-AMGEN-SWESP2015062644

PATIENT
  Age: 81 Year
  Sex: Female

DRUGS (14)
  1. FORLAX [Concomitant]
     Active Substance: POLYETHYLENE GLYCOL 4000
  2. SPIRONOLACTONE. [Concomitant]
     Active Substance: SPIRONOLACTONE
  3. FURIX [Concomitant]
     Active Substance: FUROSEMIDE
  4. ALVEDON [Concomitant]
     Active Substance: ACETAMINOPHEN
  5. MIRTAZAPINE. [Concomitant]
     Active Substance: MIRTAZAPINE
  6. BISOPROLOL [Concomitant]
     Active Substance: BISOPROLOL
  7. OXYCONTIN [Concomitant]
     Active Substance: OXYCODONE HYDROCHLORIDE
  8. WARAN [Concomitant]
     Active Substance: WARFARIN SODIUM
  9. HEMINEVRIN                         /00027501/ [Concomitant]
     Active Substance: CLOMETHIAZOLE
  10. NOVOMIX [Concomitant]
     Active Substance: INSULIN ASPART
  11. MIMPARA [Suspect]
     Active Substance: CINACALCET HYDROCHLORIDE
     Indication: HYPERPARATHYROIDISM SECONDARY
     Dosage: UNK
     Route: 048
     Dates: start: 20141211, end: 20150331
  12. OXYNORM [Concomitant]
     Active Substance: OXYCODONE HYDROCHLORIDE
  13. SOBRIL [Concomitant]
     Active Substance: OXAZEPAM
  14. IMOVANE [Concomitant]
     Active Substance: ZOPICLONE

REACTIONS (5)
  - Cardiac failure [Fatal]
  - Urticaria [Recovering/Resolving]
  - Pruritus [Recovering/Resolving]
  - Skin oedema [Recovering/Resolving]
  - Dermatitis [Recovering/Resolving]

NARRATIVE: CASE EVENT DATE: 20150315
